FAERS Safety Report 12819758 (Version 1)
Quarter: 2016Q4

REPORT INFORMATION
  Report Type: Spontaneous
  Country: US (occurrence: US)
  Receive Date: 20161006
  Receipt Date: 20161006
  Transmission Date: 20170207
  Serious: Yes (Hospitalization)
  Sender: FDA-Public Use
  Company Number: None

PATIENT
  Age: 69 Year
  Sex: Male
  Weight: 66 kg

DRUGS (1)
  1. CEPHALEXIN. [Suspect]
     Active Substance: CEPHALEXIN
     Indication: INFECTION
     Route: 048
     Dates: start: 20160909, end: 20160914

REACTIONS (5)
  - Rash generalised [None]
  - Urticaria [None]
  - Pruritus [None]
  - Dermatitis contact [None]
  - Eczema asteatotic [None]

NARRATIVE: CASE EVENT DATE: 20160913
